FAERS Safety Report 9280973 (Version 1)
Quarter: 2013Q2

REPORT INFORMATION
  Report Type: Spontaneous
  Country: US (occurrence: None)
  Receive Date: 20130508
  Receipt Date: 20130508
  Transmission Date: 20140414
  Serious: Yes (Hospitalization)
  Sender: FDA-Public Use
  Company Number: None

PATIENT
  Age: 71 Year
  Sex: Male
  Weight: 81 kg

DRUGS (1)
  1. CISPLATIN [Suspect]
     Dosage: TOTAL DOSE 200 MG

REACTIONS (4)
  - Transient ischaemic attack [None]
  - Odynophagia [None]
  - Dehydration [None]
  - Dysphagia [None]
